FAERS Safety Report 6571315-6 (Version None)
Quarter: 2010Q1

REPORT INFORMATION
  Report Type: 
  Country: None (occurrence: None)
  Receive Date: 20100204
  Receipt Date: 20100127
  Transmission Date: 20100710
  Serious: Yes (Other)
  Sender: FDA-Public Use
  Company Number: US-ABBOTT-10P-163-0622827-00

PATIENT

DRUGS (2)
  1. SYNTHROID [Suspect]
     Indication: THYROID CANCER
     Dates: start: 19910101
  2. SYNTHROID [Suspect]
     Indication: THYROIDECTOMY

REACTIONS (4)
  - BREAST CANCER [None]
  - BREAST MASS [None]
  - LYMPHOEDEMA [None]
  - THYROID FUNCTION TEST ABNORMAL [None]
